FAERS Safety Report 23510728 (Version 4)
Quarter: 2025Q3

REPORT INFORMATION
  Report Type: Spontaneous
  Country: EU (occurrence: EU)
  Receive Date: 20240211
  Receipt Date: 20250822
  Transmission Date: 20251021
  Serious: Yes (Other)
  Sender: TERSERA THERAPEUTICS
  Company Number: EU-ROCHE-2647773

PATIENT

DRUGS (53)
  1. GOSERELIN [Suspect]
     Active Substance: GOSERELIN
     Indication: HER2 positive breast cancer
     Dosage: 3.6 MILLIGRAM
     Route: 058
     Dates: start: 201610, end: 201706
  2. GOSERELIN [Suspect]
     Active Substance: GOSERELIN
     Route: 058
     Dates: start: 20201208
  3. ZOLADEX [Suspect]
     Active Substance: GOSERELIN ACETATE
     Indication: HER2 positive breast cancer
     Route: 065
  4. NOLVADEX [Suspect]
     Active Substance: TAMOXIFEN CITRATE
     Indication: HER2 positive breast cancer
     Route: 048
     Dates: start: 201610, end: 201706
  5. KADCYLA [Suspect]
     Active Substance: ADO-TRASTUZUMAB EMTANSINE
     Indication: HER2 positive breast cancer
     Dosage: 200 MILLIGRAM, Q3W
     Route: 042
     Dates: start: 20180830, end: 201811
  6. KADCYLA [Suspect]
     Active Substance: ADO-TRASTUZUMAB EMTANSINE
     Dosage: 8 MG/KG, QD
     Route: 042
     Dates: start: 20170804, end: 20170804
  7. VINORELBINE [Suspect]
     Active Substance: VINORELBINE TARTRATE
     Indication: HER2 positive breast cancer
     Dosage: 25 MILLIGRAM/SQ. METER, Q3W
     Route: 042
  8. DOCETAXEL [Suspect]
     Active Substance: DOCETAXEL
     Indication: HER2 positive breast cancer
     Dosage: 75 MILLIGRAM/SQ. METER, Q3W
     Route: 042
     Dates: start: 20170804, end: 201711
  9. TYKERB [Suspect]
     Active Substance: LAPATINIB DITOSYLATE
     Indication: HER2 positive breast cancer
     Route: 048
     Dates: start: 20191125, end: 20191125
  10. TAXOTERE [Suspect]
     Active Substance: DOCETAXEL
     Indication: HER2 positive breast cancer
     Dosage: 75 MILLIGRAM/SQ. METER, Q3W
     Route: 042
     Dates: start: 201610, end: 201706
  11. TAXOTERE [Suspect]
     Active Substance: DOCETAXEL
     Dosage: 120 MILLIGRAM, Q3W
     Route: 042
     Dates: start: 20170824, end: 20180808
  12. TAXOTERE [Suspect]
     Active Substance: DOCETAXEL
     Route: 042
     Dates: start: 20181219, end: 20190503
  13. TAXOTERE [Suspect]
     Active Substance: DOCETAXEL
     Dosage: 225 MILLIGRAM/SQ. METER, QW
     Route: 042
     Dates: start: 20170804, end: 201711
  14. TAXOTERE [Suspect]
     Active Substance: DOCETAXEL
     Dosage: 360 MILLIGRAM, QW
     Route: 042
     Dates: start: 20181219, end: 20190503
  15. TAXOTERE [Suspect]
     Active Substance: DOCETAXEL
     Dosage: 360 MILLIGRAM, QW
     Route: 042
     Dates: start: 20181219, end: 20190503
  16. LAPATINIB [Suspect]
     Active Substance: LAPATINIB
     Indication: HER2 positive breast cancer
     Route: 048
     Dates: start: 20191125, end: 20191125
  17. TRASTUZUMAB [Suspect]
     Active Substance: TRASTUZUMAB
     Indication: HER2 positive breast cancer
     Route: 065
     Dates: start: 20170804, end: 20170804
  18. ADO-TRASTUZUMAB EMTANSINE [Suspect]
     Active Substance: ADO-TRASTUZUMAB EMTANSINE
     Indication: HER2 positive breast cancer
     Route: 042
     Dates: start: 20180830, end: 201811
  19. PERTUZUMAB [Suspect]
     Active Substance: PERTUZUMAB
     Indication: HER2 positive breast cancer
     Route: 042
     Dates: start: 20170804, end: 20170804
  20. HERCEPTIN [Suspect]
     Active Substance: TRASTUZUMAB
     Indication: HER2 positive breast cancer
     Route: 042
     Dates: start: 20170804, end: 20170804
  21. HERCEPTIN [Suspect]
     Active Substance: TRASTUZUMAB
     Dosage: 6 MILLIGRAM/KILOGRAM, Q3W
     Route: 042
     Dates: start: 20170824, end: 20180808
  22. HERCEPTIN [Suspect]
     Active Substance: TRASTUZUMAB
     Dosage: 18 MILLIGRAM/KILOGRAM, WEEKLY
     Route: 042
     Dates: start: 20170824, end: 20180808
  23. HERCEPTIN [Suspect]
     Active Substance: TRASTUZUMAB
     Dosage: 1800 MILLIGRAM, QW
     Route: 042
     Dates: start: 20181219, end: 20191111
  24. HERCEPTIN [Suspect]
     Active Substance: TRASTUZUMAB
     Dosage: 600 MILLIGRAM, EVERY 3 WEEKS
     Route: 042
     Dates: start: 20181219, end: 20191111
  25. HERCEPTIN [Suspect]
     Active Substance: TRASTUZUMAB
     Dosage: 75 MILLIGRAM/SQ. METER, QW
     Route: 042
     Dates: start: 20200218, end: 20201009
  26. NAVELBINE [Suspect]
     Active Substance: VINORELBINE TARTRATE
     Indication: Product used for unknown indication
     Dosage: 25 MILLIGRAM/SQ. METER, Q3W
     Route: 042
     Dates: start: 20200218, end: 20201009
  27. NAVELBINE [Suspect]
     Active Substance: VINORELBINE TARTRATE
     Dosage: 75 MILLIGRAM/SQ. METER, TIW
     Route: 042
     Dates: start: 20170804, end: 201711
  28. PERJETA [Suspect]
     Active Substance: PERTUZUMAB
     Indication: HER2 positive breast cancer
     Dosage: 420 MILLIGRAM, Q3W
     Route: 042
     Dates: start: 20170804, end: 201711
  29. PERJETA [Suspect]
     Active Substance: PERTUZUMAB
     Dosage: 420 MILLIGRAM, EVERY 3 WEEKS
     Route: 042
     Dates: start: 20170824, end: 20180808
  30. PERJETA [Suspect]
     Active Substance: PERTUZUMAB
     Dosage: 420 MILLIGRAM, TIW
     Route: 042
     Dates: start: 20190404, end: 20190624
  31. PERJETA [Suspect]
     Active Substance: PERTUZUMAB
     Route: 042
     Dates: start: 20200218, end: 20201009
  32. PERJETA [Suspect]
     Active Substance: PERTUZUMAB
     Dosage: 600 MILLIGRAM, Q3W
     Route: 042
     Dates: start: 20181219, end: 20191111
  33. PERJETA [Suspect]
     Active Substance: PERTUZUMAB
     Route: 042
     Dates: start: 20170804, end: 20170804
  34. CAPECITABINE [Suspect]
     Active Substance: CAPECITABINE
     Indication: HER2 positive breast cancer
     Dosage: 2000 MG,Q3W
     Route: 048
     Dates: start: 20190530, end: 20191125
  35. CAPECITABINE [Suspect]
     Active Substance: CAPECITABINE
     Indication: Breast cancer
     Route: 048
     Dates: start: 20190530, end: 20191125
  36. VANCOMYCIN [Concomitant]
     Active Substance: VANCOMYCIN
     Indication: Product used for unknown indication
     Route: 048
     Dates: start: 20200512, end: 20200528
  37. VANCOMYCIN [Concomitant]
     Active Substance: VANCOMYCIN
     Dosage: 3.6 MG, Q4W
     Route: 058
     Dates: start: 201610, end: 201706
  38. RINGERS SOLUTION [Concomitant]
     Active Substance: CALCIUM CHLORIDE\POTASSIUM CHLORIDE\SODIUM CHLORIDE
     Indication: Paraparesis
     Route: 042
     Dates: start: 20200421, end: 20200508
  39. RINGERS SOLUTION [Concomitant]
     Active Substance: CALCIUM CHLORIDE\POTASSIUM CHLORIDE\SODIUM CHLORIDE
     Indication: Product used for unknown indication
     Route: 042
     Dates: start: 20170804, end: 20170804
  40. GENTAMICIN [Concomitant]
     Active Substance: GENTAMICIN
     Indication: Paraparesis
     Route: 048
     Dates: start: 20200421, end: 20200508
  41. GENTAMICIN [Concomitant]
     Active Substance: GENTAMICIN
     Indication: Product used for unknown indication
     Dosage: 420 MG, Q3W
     Route: 042
     Dates: start: 20170824, end: 20180808
  42. MANNITOL [Concomitant]
     Active Substance: MANNITOL
     Indication: Paraparesis
     Route: 042
     Dates: start: 20200421, end: 20200508
  43. MANNITOL [Concomitant]
     Active Substance: MANNITOL
     Indication: Product used for unknown indication
     Dosage: 6 MILLIGRAM/KILOGRAM, Q3W
     Route: 042
     Dates: start: 20170824, end: 20180808
  44. MORPHINE SULFATE [Concomitant]
     Active Substance: MORPHINE SULFATE
     Indication: Product used for unknown indication
     Route: 065
  45. METRONIDAZOLE [Concomitant]
     Active Substance: METRONIDAZOLE
     Indication: Product used for unknown indication
     Route: 048
     Dates: start: 20200512, end: 20200518
  46. METRONIDAZOLE [Concomitant]
     Active Substance: METRONIDAZOLE
     Route: 042
     Dates: start: 20200421, end: 20200508
  47. FAMOTIDINE [Concomitant]
     Active Substance: FAMOTIDINE
     Indication: Gastrointestinal bacterial infection
     Route: 042
     Dates: start: 20200512, end: 20200528
  48. FAMOTIDINE [Concomitant]
     Active Substance: FAMOTIDINE
     Route: 065
  49. FENTANYL CITRATE [Concomitant]
     Active Substance: FENTANYL CITRATE
     Indication: Product used for unknown indication
     Route: 065
  50. XGEVA [Concomitant]
     Active Substance: DENOSUMAB
     Indication: HER2 positive breast cancer
     Dosage: 120 MILLIGRAM, Q4W
     Route: 058
     Dates: start: 20181219
  51. XGEVA [Concomitant]
     Active Substance: DENOSUMAB
     Route: 058
     Dates: start: 20200512, end: 20200528
  52. MORPHINE [Concomitant]
     Active Substance: MORPHINE
     Indication: Product used for unknown indication
     Dosage: 200 MG 200 MG, Q3W
     Route: 042
     Dates: start: 20180830, end: 201811
  53. MORPHINE [Concomitant]
     Active Substance: MORPHINE
     Route: 065

REACTIONS (5)
  - Compression fracture [Recovered/Resolved]
  - Gastrointestinal bacterial infection [Recovered/Resolved]
  - Metastases to spine [Recovered/Resolved]
  - Paraparesis [Recovered/Resolved]
  - Pelvic pain [Not Recovered/Not Resolved]

NARRATIVE: CASE EVENT DATE: 20191201
